FAERS Safety Report 5386296-0 (Version None)
Quarter: 2007Q3

REPORT INFORMATION
  Report Type: 
  Country: None (occurrence: None)
  Receive Date: 20070710
  Receipt Date: 20070710
  Transmission Date: 20080115
  Serious: Yes (Other)
  Sender: FDA-Public Use
  Company Number: None

PATIENT
  Age: 35 Year
  Sex: Male
  Weight: 94.8018 kg

DRUGS (5)
  1. AVELOX [Suspect]
     Indication: TUBERCULOSIS
     Dosage: 400 MG QDAY PO
     Route: 048
     Dates: start: 20070112, end: 20070622
  2. PYRAZINAMIDE [Concomitant]
  3. ISONIAZID [Concomitant]
  4. PYRIDOXINE HCL [Concomitant]
  5. RIFAMPIN [Concomitant]

REACTIONS (1)
  - TENDON DISORDER [None]
